FAERS Safety Report 15183310 (Version 1)
Quarter: 2018Q3

REPORT INFORMATION
  Report Type: Report from Study
  Country: US (occurrence: US)
  Receive Date: 20180723
  Receipt Date: 20180723
  Transmission Date: 20181010
  Serious: Yes (Other)
  Sender: FDA-Public Use
  Company Number: US-MYLANLABS-2018M1052948

PATIENT
  Sex: Female
  Weight: 64 kg

DRUGS (2)
  1. GLATIRAMER ACETATE INJECTION [Suspect]
     Active Substance: GLATIRAMER ACETATE
     Indication: RELAPSING-REMITTING MULTIPLE SCLEROSIS
     Dosage: 40 MG, 3XW
     Route: 058
  2. INSULIN [Concomitant]
     Active Substance: INSULIN NOS
     Indication: DIABETES MELLITUS
     Dosage: UNK

REACTIONS (7)
  - Joint injury [Unknown]
  - Gait disturbance [Unknown]
  - Headache [Unknown]
  - Fall [Unknown]
  - Drug ineffective [Unknown]
  - Condition aggravated [Unknown]
  - Pain [Unknown]
